FAERS Safety Report 16759863 (Version 1)
Quarter: 2019Q3

REPORT INFORMATION
  Report Type: Report from Study
  Country: DE (occurrence: DE)
  Receive Date: 20190830
  Receipt Date: 20190830
  Transmission Date: 20191005
  Serious: Yes (Hospitalization, Other)
  Sender: FDA-Public Use
  Company Number: DE-PFIZER INC-2019368687

PATIENT
  Sex: Male

DRUGS (16)
  1. NO SUBJECT DRUG [Suspect]
     Active Substance: UNSPECIFIED INGREDIENT
     Dosage: NO DOSE GIVEN
  2. CERTOLIZUMAB PEGOL [Suspect]
     Active Substance: CERTOLIZUMAB PEGOL
     Indication: RHEUMATOID ARTHRITIS
     Dosage: 200 MG, CYCLIC (EVERY TWO WEEKS)
     Dates: start: 201509, end: 201708
  3. CERTOLIZUMAB PEGOL [Suspect]
     Active Substance: CERTOLIZUMAB PEGOL
     Dosage: 200 MG, UNK
     Dates: start: 201803, end: 201810
  4. CERTOLIZUMAB PEGOL [Suspect]
     Active Substance: CERTOLIZUMAB PEGOL
     Dosage: 200 MG, UNK
     Dates: start: 201709, end: 201802
  5. TILIDIN [Concomitant]
     Active Substance: NALOXONE HYDROCHLORIDE\TILIDINE HYDROCHLORIDE
  6. SYMBICORT [Concomitant]
     Active Substance: BUDESONIDE\FORMOTEROL FUMARATE DIHYDRATE
  7. CARMEN [LERCANIDIPINE HYDROCHLORIDE] [Concomitant]
     Active Substance: LERCANIDIPINE HYDROCHLORIDE
  8. PANTOZOL [ERYTHROMYCIN ETHYLSUCCINATE;SULFAFURAZOLE] [Concomitant]
  9. CALCIGEN [CALCIUM CARBONATE] [Concomitant]
  10. XARELTO [Concomitant]
     Active Substance: RIVAROXABAN
  11. METHOTREXATE SODIUM. [Suspect]
     Active Substance: METHOTREXATE SODIUM
     Dosage: 15 MG, UNK
     Dates: start: 20130909, end: 20140623
  12. METHOTREXATE SODIUM. [Suspect]
     Active Substance: METHOTREXATE SODIUM
     Dosage: 17.5 MG, UNK
     Dates: start: 20181212
  13. BISOPROLOL [Concomitant]
     Active Substance: BISOPROLOL
  14. PREDNISOLON [PREDNISOLONE] [Concomitant]
     Active Substance: PREDNISOLONE
  15. METHOTREXATE SODIUM. [Suspect]
     Active Substance: METHOTREXATE SODIUM
     Dosage: 20 MG, UNK
     Dates: start: 20141015, end: 20180425
  16. LANTAREL [Concomitant]
     Active Substance: METHOTREXATE SODIUM
     Dosage: 17.5 MG, WEEKLY (QW)
     Dates: end: 201810

REACTIONS (3)
  - Tooth infection [Recovered/Resolved]
  - Bladder transitional cell carcinoma [Not Recovered/Not Resolved]
  - Abscess jaw [Not Recovered/Not Resolved]

NARRATIVE: CASE EVENT DATE: 20181008
